FAERS Safety Report 25023804 (Version 2)
Quarter: 2025Q1

REPORT INFORMATION
  Report Type: Spontaneous
  Country: US (occurrence: US)
  Receive Date: 20250228
  Receipt Date: 20250325
  Transmission Date: 20250409
  Serious: Yes (Hospitalization)
  Sender: RIGEL PHARMACEUTICALS
  Company Number: US-RIGEL Pharmaceuticals, INC-20250200183

PATIENT
  Sex: Female

DRUGS (1)
  1. REZLIDHIA [Suspect]
     Active Substance: OLUTASIDENIB
     Indication: Acute myeloid leukaemia
     Dosage: 150 MILLIGRAM, BID
     Route: 048

REACTIONS (5)
  - Failure to thrive [Unknown]
  - Hypertransaminasaemia [Unknown]
  - Colitis ischaemic [Unknown]
  - Constipation [Unknown]
  - Delirium [Unknown]
